FAERS Safety Report 14679850 (Version 1)
Quarter: 2018Q1

REPORT INFORMATION
  Report Type: Spontaneous
  Country: US (occurrence: US)
  Receive Date: 20180325
  Receipt Date: 20180325
  Transmission Date: 20180509
  Serious: Yes (Disabling, Other)
  Sender: FDA-Public Use
  Company Number: None

PATIENT
  Age: 39 Year
  Sex: Female
  Weight: 98.55 kg

DRUGS (11)
  1. HYDROCODONE [Concomitant]
     Active Substance: HYDROCODONE
  2. KEPPRA [Concomitant]
     Active Substance: LEVETIRACETAM
  3. SUMATRIPTAN. [Concomitant]
     Active Substance: SUMATRIPTAN
  4. LUNESTA [Concomitant]
     Active Substance: ESZOPICLONE
  5. ODANSETRONE [Concomitant]
  6. BACLOFEN. [Concomitant]
     Active Substance: BACLOFEN
  7. VITAMAN C [Concomitant]
  8. CIPROFLOXACN [Suspect]
     Active Substance: CIPROFLOXACIN
     Indication: COLITIS
     Dosage: ?          QUANTITY:20 TABLET(S);?
     Route: 048
     Dates: start: 20180311, end: 20180314
  9. MULTIVITAMEN [Concomitant]
  10. B12 COMPLEX [Concomitant]
  11. DICYCLOMINE [Concomitant]
     Active Substance: DICYCLOMINE HYDROCHLORIDE

REACTIONS (15)
  - Dizziness [None]
  - Arthralgia [None]
  - Abdominal distension [None]
  - Hallucination [None]
  - Palpitations [None]
  - Hyperhidrosis [None]
  - Colitis [None]
  - Vomiting [None]
  - Chest pain [None]
  - Haemorrhoids [None]
  - Abdominal pain [None]
  - Diarrhoea [None]
  - Abdominal rigidity [None]
  - Musculoskeletal chest pain [None]
  - Musculoskeletal pain [None]

NARRATIVE: CASE EVENT DATE: 20180311
